FAERS Safety Report 4973951-7 (Version None)
Quarter: 2006Q2

REPORT INFORMATION
  Report Type: 
  Country: None (occurrence: None)
  Receive Date: 20060410
  Receipt Date: 20060321
  Transmission Date: 20061013
  Serious: Yes (Hospitalization)
  Sender: FDA-Public Use
  Company Number: 34349

PATIENT
  Age: 76 Year
  Sex: Male

DRUGS (2)
  1. TRAVATAN [Suspect]
     Indication: GLAUCOMA
     Dosage: 1 GGT QD OPHT
     Route: 047
     Dates: start: 20051123
  2. ISOSORBIDE DINITRATE [Concomitant]

REACTIONS (1)
  - RESPIRATORY FAILURE [None]
